FAERS Safety Report 17096105 (Version 1)
Quarter: 2019Q4

REPORT INFORMATION
  Report Type: Spontaneous
  Country: CN (occurrence: CN)
  Receive Date: 20191202
  Receipt Date: 20191202
  Transmission Date: 20200122
  Serious: Yes (Other)
  Sender: FDA-Public Use
  Company Number: CN-ROCHE-2480288

PATIENT
  Age: 45 Year
  Sex: Female

DRUGS (46)
  1. XELODA [Suspect]
     Active Substance: CAPECITABINE
     Dosage: MAINTENANCE THERAPY
     Route: 048
     Dates: start: 201201, end: 201301
  2. HERCEPTIN [Suspect]
     Active Substance: TRASTUZUMAB
     Dosage: 2 CYCLES
     Route: 065
     Dates: start: 201201, end: 201301
  3. HERCEPTIN [Suspect]
     Active Substance: TRASTUZUMAB
     Dosage: MAINTENANCE THERAPY
     Route: 065
     Dates: start: 201305, end: 201308
  4. ZOLEDRONIC ACID [Concomitant]
     Active Substance: ZOLEDRONIC ACID
     Indication: METASTASES TO BONE
     Dosage: EVERY MONTH
     Route: 065
     Dates: start: 20080823
  5. TAMOXIFEN [Concomitant]
     Active Substance: TAMOXIFEN
     Route: 065
     Dates: start: 201011, end: 201102
  6. VINORELBINE [Concomitant]
     Active Substance: VINORELBINE TARTRATE
     Dosage: 7 CYCLES
     Route: 065
     Dates: start: 20130905, end: 20140207
  7. THALIDOMIDE [Concomitant]
     Active Substance: THALIDOMIDE
     Indication: INVASIVE DUCTAL BREAST CARCINOMA
     Dosage: 7 CYCLES
     Route: 065
     Dates: start: 20140426, end: 20141010
  8. NERATINIB [Concomitant]
     Active Substance: NERATINIB
     Indication: INVASIVE DUCTAL BREAST CARCINOMA
     Dosage: MULTICOURSE THERAPY
     Route: 065
     Dates: start: 201505, end: 201802
  9. HERCEPTIN [Suspect]
     Active Substance: TRASTUZUMAB
     Dosage: SINGLE-AGENT MAINTENANCE THERAPY
     Route: 065
     Dates: start: 201411, end: 201504
  10. KADCYLA [Suspect]
     Active Substance: ADO-TRASTUZUMAB EMTANSINE
     Indication: INVASIVE DUCTAL BREAST CARCINOMA
     Route: 065
     Dates: start: 201902, end: 201904
  11. CYCLOPHOSPHAMIDE. [Concomitant]
     Active Substance: CYCLOPHOSPHAMIDE
     Indication: INVASIVE DUCTAL BREAST CARCINOMA
     Dosage: 6 CYCLES EC CHEMOTHERAPY
     Route: 065
     Dates: start: 20100623, end: 20101019
  12. PACLITAXEL. [Concomitant]
     Active Substance: PACLITAXEL
     Indication: INVASIVE DUCTAL BREAST CARCINOMA
     Dosage: DAY 1, 1 CYCLE
     Route: 065
     Dates: start: 20110222
  13. VINORELBINE [Concomitant]
     Active Substance: VINORELBINE TARTRATE
     Indication: INVASIVE DUCTAL BREAST CARCINOMA
     Dosage: 2 CYCLES
     Route: 065
     Dates: start: 201301, end: 201304
  14. THALIDOMIDE [Concomitant]
     Active Substance: THALIDOMIDE
     Dosage: 1 CYCLE
     Route: 065
     Dates: start: 20180417
  15. PYROTINIB [Concomitant]
     Active Substance: PYROTINIB
     Indication: INVASIVE DUCTAL BREAST CARCINOMA
     Dosage: MAINTENANCE THERAPY
     Route: 065
     Dates: start: 20181029, end: 201902
  16. XELODA [Suspect]
     Active Substance: CAPECITABINE
     Indication: INVASIVE DUCTAL BREAST CARCINOMA
     Dosage: 6 CYCLES
     Route: 048
     Dates: start: 200808, end: 200901
  17. HERCEPTIN [Suspect]
     Active Substance: TRASTUZUMAB
     Indication: INVASIVE DUCTAL BREAST CARCINOMA
     Dosage: DAY 0, 4 CYCLES
     Route: 065
     Dates: start: 20110916, end: 20111215
  18. CISPLATIN. [Concomitant]
     Active Substance: CISPLATIN
     Dosage: 4 CYCLE HTP CHEMOTHERAPY, DAY 1-2
     Route: 065
     Dates: start: 20110916, end: 20111215
  19. TEMOZOLOMIDE. [Concomitant]
     Active Substance: TEMOZOLOMIDE
     Indication: INVASIVE DUCTAL BREAST CARCINOMA
     Dosage: DAY 1-5, 7 CYCLES
     Route: 065
     Dates: start: 20140426, end: 20141010
  20. XELODA [Suspect]
     Active Substance: CAPECITABINE
     Dosage: 2 CYCLES
     Route: 048
     Dates: start: 201301, end: 201304
  21. THALIDOMIDE [Concomitant]
     Active Substance: THALIDOMIDE
     Dosage: 7 CYCLES
     Route: 065
     Dates: start: 20180509, end: 20181009
  22. DOCETAXEL. [Concomitant]
     Active Substance: DOCETAXEL
     Dosage: 1 CYCLES
     Route: 065
     Dates: start: 20110714
  23. AVASTIN [Suspect]
     Active Substance: BEVACIZUMAB
     Indication: INVASIVE DUCTAL BREAST CARCINOMA
     Dosage: 1 CYCLES, DAY1
     Route: 065
     Dates: start: 20110804
  24. HERCEPTIN [Suspect]
     Active Substance: TRASTUZUMAB
     Dosage: DAY 1, 7CYCLE
     Route: 065
     Dates: start: 20180509, end: 20181009
  25. LAPATINIB [Concomitant]
     Active Substance: LAPATINIB
     Indication: INVASIVE DUCTAL BREAST CARCINOMA
     Dosage: MULTICOURSE THERAPY
     Route: 065
     Dates: start: 201505, end: 201802
  26. LAPATINIB [Concomitant]
     Active Substance: LAPATINIB
     Dosage: 1 CYCLE
     Route: 065
     Dates: start: 20180417
  27. PACLITAXEL ALBUMIN [Concomitant]
     Active Substance: PACLITAXEL
     Dosage: DAY 2, 7CYCLE
     Route: 065
     Dates: start: 20180509, end: 20181009
  28. XELODA [Suspect]
     Active Substance: CAPECITABINE
     Dosage: MULTICOURSE THERAPY
     Route: 048
     Dates: start: 201505, end: 201802
  29. HERCEPTIN [Suspect]
     Active Substance: TRASTUZUMAB
     Dosage: 2 CYCLES
     Route: 065
     Dates: start: 201301, end: 201304
  30. HERCEPTIN [Suspect]
     Active Substance: TRASTUZUMAB
     Dosage: 7 CYCLES
     Route: 065
     Dates: start: 20140426, end: 20141010
  31. EXEMESTANE. [Concomitant]
     Active Substance: EXEMESTANE
     Route: 065
     Dates: start: 200902, end: 201006
  32. EPIRUBICIN [Concomitant]
     Active Substance: EPIRUBICIN
     Indication: INVASIVE DUCTAL BREAST CARCINOMA
     Dosage: 6 CYCLES EC CHEMOTHERAPY
     Route: 065
     Dates: start: 20100623, end: 20101019
  33. FULVESTRANT. [Concomitant]
     Active Substance: FULVESTRANT
     Dosage: NO REGULAR USE
     Route: 065
     Dates: start: 20110420, end: 201107
  34. PACLITAXEL ALBUMIN [Concomitant]
     Active Substance: PACLITAXEL
     Indication: INVASIVE DUCTAL BREAST CARCINOMA
     Dosage: DAY 2, 1CYCLE
     Route: 065
     Dates: start: 20180417
  35. HERCEPTIN [Suspect]
     Active Substance: TRASTUZUMAB
     Dosage: 7 CYCLES
     Route: 065
     Dates: start: 20130905, end: 20140207
  36. HERCEPTIN [Suspect]
     Active Substance: TRASTUZUMAB
     Dosage: MULTICOURSE THERAPY
     Route: 065
     Dates: start: 201505, end: 201802
  37. PERJETA [Suspect]
     Active Substance: PERTUZUMAB
     Indication: INVASIVE DUCTAL BREAST CARCINOMA
     Dosage: MULTICOURSE THERAPY
     Route: 065
     Dates: start: 201505, end: 201802
  38. GEMCITABINE. [Concomitant]
     Active Substance: GEMCITABINE
     Indication: INVASIVE DUCTAL BREAST CARCINOMA
     Dosage: DAY 2 AND 14, 1 CYCLES
     Route: 065
     Dates: start: 20110222
  39. CISPLATIN. [Concomitant]
     Active Substance: CISPLATIN
     Indication: INVASIVE DUCTAL BREAST CARCINOMA
     Dosage: 1 CYCLE
     Route: 065
     Dates: start: 20110704
  40. TEGAFUR [Concomitant]
     Active Substance: TEGAFUR
     Indication: INVASIVE DUCTAL BREAST CARCINOMA
     Dosage: 2 CYCLES
     Route: 065
     Dates: start: 201305, end: 201308
  41. DOCETAXEL. [Concomitant]
     Active Substance: DOCETAXEL
     Indication: INVASIVE DUCTAL BREAST CARCINOMA
     Dosage: 6 CYCLES
     Route: 065
     Dates: start: 200808, end: 200901
  42. DOCETAXEL. [Concomitant]
     Active Substance: DOCETAXEL
     Dosage: 4 CYCLES HTP CHEMOTHERAPY, DAY1
     Route: 065
     Dates: start: 20110916, end: 20111215
  43. CATEQUENTINIB. [Concomitant]
     Active Substance: CATEQUENTINIB
     Indication: INVASIVE DUCTAL BREAST CARCINOMA
     Dosage: 2 MONTHS
     Route: 065
     Dates: start: 201904, end: 201906
  44. HERCEPTIN [Suspect]
     Active Substance: TRASTUZUMAB
     Dosage: DAY 1, 1CYCLE
     Route: 065
     Dates: start: 20180417
  45. CISPLATIN. [Concomitant]
     Active Substance: CISPLATIN
     Dosage: 1 CYCLE, 40 MG DAY 1-2, 20 MG DAY 3
     Route: 065
     Dates: start: 20110804
  46. DOCETAXEL. [Concomitant]
     Active Substance: DOCETAXEL
     Dosage: 1 CYCLES, DAY1
     Route: 065
     Dates: start: 20110804

REACTIONS (7)
  - Palmar-plantar erythrodysaesthesia syndrome [Unknown]
  - Rash [Unknown]
  - Intentional product use issue [Unknown]
  - Drug ineffective [Unknown]
  - Gastrointestinal disorder [Unknown]
  - Off label use [Unknown]
  - Bone marrow failure [Unknown]

NARRATIVE: CASE EVENT DATE: 2010
